FAERS Safety Report 4988236-2 (Version None)
Quarter: 2006Q2

REPORT INFORMATION
  Report Type: 
  Country: None (occurrence: None)
  Receive Date: 20060425
  Receipt Date: 20060411
  Transmission Date: 20061013
  Serious: Yes (Death)
  Sender: FDA-Public Use
  Company Number: 2006050341

PATIENT
  Age: 77 Year
  Sex: Male

DRUGS (2)
  1. VFEND [Suspect]
     Indication: ASPERGILLOSIS
     Dosage: SEE IMAGE
     Route: 042
     Dates: start: 20060118, end: 20060118
  2. VFEND [Suspect]
     Indication: ASPERGILLOSIS
     Dosage: SEE IMAGE
     Route: 042
     Dates: start: 20060119, end: 20060201

REACTIONS (2)
  - INTERSTITIAL LUNG DISEASE [None]
  - PNEUMONIA [None]
